FAERS Safety Report 12620886 (Version 1)
Quarter: 2016Q3

REPORT INFORMATION
  Report Type: Spontaneous
  Country: US (occurrence: None)
  Receive Date: 20160803
  Receipt Date: 20160803
  Transmission Date: 20161109
  Serious: No
  Sender: FDA-Public Use
  Company Number: None

PATIENT
  Sex: Male

DRUGS (2)
  1. TOUJEO [Suspect]
     Active Substance: INSULIN GLARGINE
  2. LEVEMIR [Suspect]
     Active Substance: INSULIN DETEMIR

REACTIONS (5)
  - Injection site urticaria [None]
  - Weight decreased [None]
  - Blood glucose increased [None]
  - Injection site pruritus [None]
  - Blood pressure decreased [None]
